FAERS Safety Report 5069295-8 (Version None)
Quarter: 2006Q3

REPORT INFORMATION
  Report Type: 
  Country: None (occurrence: None)
  Receive Date: 20060731
  Receipt Date: 20060720
  Transmission Date: 20061208
  Serious: Yes (Other)
  Sender: FDA-Public Use
  Company Number: 2006090305

PATIENT
  Sex: Male
  Weight: 81.6475 kg

DRUGS (9)
  1. LIPITOR [Suspect]
     Indication: BLOOD CHOLESTEROL
     Dosage: 10 MG (10 MG, 1 IN 1 D)
     Dates: start: 20051201
  2. GLYBURIDE [Concomitant]
  3. TOPROL-XL [Concomitant]
  4. LISINOPRIL [Concomitant]
  5. TAMSULOSIN HYDROCHLORIDE [Concomitant]
  6. PROSCAR [Concomitant]
  7. ACETYLSALICYLIC ACID SRT [Concomitant]
  8. IRON [Concomitant]
  9. MULTIVITAMIN [Concomitant]

REACTIONS (6)
  - CORONARY ARTERY OCCLUSION [None]
  - DIZZINESS [None]
  - EXERCISE TOLERANCE DECREASED [None]
  - HEADACHE [None]
  - INCISIONAL HERNIA REPAIR [None]
  - WEIGHT INCREASED [None]
